FAERS Safety Report 14227084 (Version 2)
Quarter: 2017Q4

REPORT INFORMATION
  Report Type: Spontaneous
  Country: US (occurrence: US)
  Receive Date: 20171127
  Receipt Date: 20171211
  Transmission Date: 20180321
  Serious: No
  Sender: FDA-Public Use
  Company Number: US-ELI_LILLY_AND_COMPANY-US201711007653

PATIENT
  Age: 54 Year
  Sex: Female

DRUGS (2)
  1. TRULICITY [Suspect]
     Active Substance: DULAGLUTIDE
     Indication: TYPE 2 DIABETES MELLITUS
     Dosage: 0.75 UNK, UNK
     Route: 058
     Dates: start: 20171022
  2. TRULICITY [Suspect]
     Active Substance: DULAGLUTIDE
     Indication: LIVER FUNCTION TEST DECREASED
     Dosage: 0.75 MG, UNKNOWN
     Route: 058
     Dates: start: 20171115

REACTIONS (5)
  - Eructation [Recovered/Resolved]
  - Drug hypersensitivity [Unknown]
  - Abdominal pain [Recovered/Resolved]
  - Diarrhoea [Recovered/Resolved]
  - Flatulence [Recovered/Resolved]

NARRATIVE: CASE EVENT DATE: 20171022
